FAERS Safety Report 7595187-6 (Version None)
Quarter: 2011Q2

REPORT INFORMATION
  Report Type: 
  Country: None (occurrence: None)
  Receive Date: 20110620
  Receipt Date: 20110504
  Transmission Date: 20111010
  Serious: Yes (Hospitalization)
  Sender: FDA-Public Use
  Company Number: UTC-006876

PATIENT
  Age: 65 Year
  Sex: Female
  Weight: 100.9 kg

DRUGS (4)
  1. PLAVIX [Concomitant]
  2. TYVASO [Suspect]
     Indication: PULMONARY HYPERTENSION
     Dosage: 120 MCG (30 MCG, 4 IN 1 D) INHALATION
     Route: 055
     Dates: start: 20110307
  3. DIURETICS (DIURETICS) [Concomitant]
  4. REVATIO [Concomitant]

REACTIONS (1)
  - EPISTAXIS [None]
